FAERS Safety Report 8848234 (Version 1)
Quarter: 2012Q4

REPORT INFORMATION
  Report Type: 
  Country: US (occurrence: US)
  Receive Date: 20121018
  Receipt Date: 20121018
  Transmission Date: 20130627
  Serious: No
  Sender: FDA-Public Use
  Company Number: US-BAYER-2012-108835

PATIENT
  Age: 73 Year
  Sex: Female
  Weight: 70.3 kg

DRUGS (4)
  1. ALEVE CAPLET/TABLET,MIDOL EXTENDED RELIEF CAPLET [Suspect]
     Indication: TOOTHACHE
     Dosage: 1 DF, UNK
     Route: 048
     Dates: start: 20121012
  2. VITAMINS [Concomitant]
  3. ORAJEL OR AMBESOL TOOTH NUMBING GEL [Concomitant]
  4. ASPIRIN [Concomitant]

REACTIONS (1)
  - Pain [None]
